FAERS Safety Report 19206036 (Version 1)
Quarter: 2021Q2

REPORT INFORMATION
  Report Type: Spontaneous
  Country: US (occurrence: US)
  Receive Date: 20210503
  Receipt Date: 20210503
  Transmission Date: 20210717
  Serious: No
  Sender: FDA-Public Use
  Company Number: None

PATIENT
  Age: 72 Year
  Sex: Male
  Weight: 85.5 kg

DRUGS (4)
  1. ASPIRIN 81MG [Concomitant]
     Active Substance: ASPIRIN
  2. ROSUVASTATIN 40MG [Concomitant]
     Active Substance: ROSUVASTATIN
  3. TAMSULOSIN HCL 0.4MG CAPSULE [Suspect]
     Active Substance: TAMSULOSIN HYDROCHLORIDE
     Indication: URINE OUTPUT DECREASED
     Route: 048
     Dates: start: 20210419, end: 20210420
  4. DOXYCYCLINE 20MG [Concomitant]
     Active Substance: DOXYCYCLINE

REACTIONS (4)
  - Dizziness [None]
  - Skin laceration [None]
  - Flank pain [None]
  - Syncope [None]

NARRATIVE: CASE EVENT DATE: 20210421
